FAERS Safety Report 7972472 (Version 3)
Quarter: 2014Q1

REPORT INFORMATION
  Report Type: Spontaneous
  Country: US (occurrence: US)
  Receive Date: 20110603
  Receipt Date: 20140210
  Transmission Date: 20141002
  Serious: Yes (Hospitalization, Other)
  Sender: FDA-Public Use
  Company Number: US-BAYER-2010-002164

PATIENT
  Age: 23 Year
  Sex: Female
  Weight: 108.84 kg

DRUGS (3)
  1. YAZ [Suspect]
     Dosage: UNK
     Dates: start: 200803, end: 201003
  2. METHADONE [Concomitant]
  3. PERCOCET [Concomitant]

REACTIONS (2)
  - Cholelithiasis [None]
  - Cholecystitis chronic [None]
